FAERS Safety Report 10203522 (Version 1)
Quarter: 2014Q2

REPORT INFORMATION
  Report Type: Spontaneous
  Country: US (occurrence: None)
  Receive Date: 20140523
  Receipt Date: 20140523
  Transmission Date: 20141212
  Serious: Yes (Other)
  Sender: FDA-Public Use
  Company Number: SYM-2014-21214

PATIENT
  Sex: Female

DRUGS (51)
  1. BUPROPION HYDROCHLORIDE [Suspect]
     Indication: PRODUCT USED FOR UNKNOWN INDICATION
  2. LORAZEPAM [Suspect]
     Indication: PRODUCT USED FOR UNKNOWN INDICATION
  3. AMBIEN [Suspect]
     Indication: PRODUCT USED FOR UNKNOWN INDICATION
  4. SUMATRIPTAN SUCCINATE [Suspect]
     Indication: MIGRAINE
     Dates: start: 2013
  5. SUMATRIPTAN SUCCINATE [Suspect]
     Indication: MIGRAINE
  6. AMERGE [Suspect]
     Indication: PRODUCT USED FOR UNKNOWN INDICATION
  7. FLONASE [Suspect]
     Indication: PRODUCT USED FOR UNKNOWN INDICATION
  8. LAMICTAL [Suspect]
     Indication: PRODUCT USED FOR UNKNOWN INDICATION
  9. ADVIL [Suspect]
     Indication: PRODUCT USED FOR UNKNOWN INDICATION
  10. ASPIRIN [Suspect]
     Indication: PRODUCT USED FOR UNKNOWN INDICATION
  11. EXCEDRIN MIGRAINE [Suspect]
  12. PARACETAMOL [Suspect]
     Indication: PRODUCT USED FOR UNKNOWN INDICATION
  13. FEVERFEW [Suspect]
     Indication: PRODUCT USED FOR UNKNOWN INDICATION
  14. NIACIN [Suspect]
     Indication: PRODUCT USED FOR UNKNOWN INDICATION
  15. MAGNESIUM CITRATE [Suspect]
     Indication: PRODUCT USED FOR UNKNOWN INDICATION
  16. GINGER [Suspect]
     Indication: PRODUCT USED FOR UNKNOWN INDICATION
  17. COENZYME Q10 [Suspect]
     Indication: PRODUCT USED FOR UNKNOWN INDICATION
  18. GINKGO BILOBA [Suspect]
     Indication: PRODUCT USED FOR UNKNOWN INDICATION
  19. FROVA [Suspect]
     Indication: PRODUCT USED FOR UNKNOWN INDICATION
  20. MAXALT [Suspect]
     Indication: PRODUCT USED FOR UNKNOWN INDICATION
  21. SEROQUEL [Suspect]
     Indication: PRODUCT USED FOR UNKNOWN INDICATION
  22. RELPAX [Suspect]
     Indication: PRODUCT USED FOR UNKNOWN INDICATION
  23. ZOMIG [Suspect]
     Indication: PRODUCT USED FOR UNKNOWN INDICATION
  24. MIGRANAL [Suspect]
     Indication: PRODUCT USED FOR UNKNOWN INDICATION
  25. TOPAMAX [Suspect]
     Indication: PRODUCT USED FOR UNKNOWN INDICATION
  26. NEURONTIN [Suspect]
     Indication: PRODUCT USED FOR UNKNOWN INDICATION
  27. VERAPAMIL [Suspect]
     Indication: PRODUCT USED FOR UNKNOWN INDICATION
  28. DEPAKOTE [Suspect]
     Indication: PRODUCT USED FOR UNKNOWN INDICATION
  29. ERGOTRATE [Suspect]
     Indication: PRODUCT USED FOR UNKNOWN INDICATION
  30. CAFERGOT [Suspect]
     Indication: PRODUCT USED FOR UNKNOWN INDICATION
  31. MIDRID (MIDRID /00450801/) (PARACETAMOL, DICHLORALPHENAZONE, ISOMETHEPTENE) [Suspect]
     Indication: PRODUCT USED FOR UNKNOWN INDICATION
  32. AUROTO [Suspect]
     Indication: PRODUCT USED FOR UNKNOWN INDICATION
  33. ALEVE [Suspect]
     Indication: PRODUCT USED FOR UNKNOWN INDICATION
  34. PROCHLORPERAZINE [Suspect]
     Indication: PRODUCT USED FOR UNKNOWN INDICATION
  35. PROMETHAZINE HYDROCHLORIDE [Suspect]
     Indication: PRODUCT USED FOR UNKNOWN INDICATION
  36. CEFALEXIN [Suspect]
     Indication: PRODUCT USED FOR UNKNOWN INDICATION
  37. NUVARING [Suspect]
     Indication: PRODUCT USED FOR UNKNOWN INDICATION
  38. YAZ [Suspect]
     Indication: PRODUCT USED FOR UNKNOWN INDICATION
  39. YASMIN [Suspect]
     Indication: PRODUCT USED FOR UNKNOWN INDICATION
  40. PHENERGAN [Suspect]
     Indication: PRODUCT USED FOR UNKNOWN INDICATION
  41. AMITRIPTYLINE [Suspect]
     Indication: PRODUCT USED FOR UNKNOWN INDICATION
  42. CYMBALTA [Suspect]
     Indication: PRODUCT USED FOR UNKNOWN INDICATION
  43. ZOLOFT [Suspect]
     Indication: PRODUCT USED FOR UNKNOWN INDICATION
  44. ZYRTEC-D [Suspect]
     Indication: PRODUCT USED FOR UNKNOWN INDICATION
  45. ALLEGRA [Suspect]
     Indication: PRODUCT USED FOR UNKNOWN INDICATION
  46. OPIUM ALKALOIDS [Suspect]
     Indication: PRODUCT USED FOR UNKNOWN INDICATION
  47. MOTRIN [Suspect]
     Indication: PRODUCT USED FOR UNKNOWN INDICATION
  48. TYLENOL [Suspect]
     Indication: PRODUCT USED FOR UNKNOWN INDICATION
  49. DHE [Suspect]
     Indication: PRODUCT USED FOR UNKNOWN INDICATION
  50. NAPROSYN [Suspect]
     Indication: PRODUCT USED FOR UNKNOWN INDICATION
  51. MIDCHLOR [Suspect]
     Indication: PRODUCT USED FOR UNKNOWN INDICATION

REACTIONS (22)
  - Suicidal ideation [None]
  - Therapeutic response decreased [None]
  - Drug ineffective [None]
  - Device failure [None]
  - Fear [None]
  - Dyspnoea [None]
  - Chest discomfort [None]
  - Throat tightness [None]
  - Rash [None]
  - Abdominal pain upper [None]
  - Migraine [None]
  - Tinnitus [None]
  - Cognitive disorder [None]
  - Memory impairment [None]
  - Tremor [None]
  - Disturbance in attention [None]
  - Parosmia [None]
  - Impaired work ability [None]
  - Panic attack [None]
  - Convulsion [None]
  - Feeling of despair [None]
  - Product substitution issue [None]
